FAERS Safety Report 24141922 (Version 1)
Quarter: 2024Q3

REPORT INFORMATION
  Report Type: Spontaneous
  Country: US (occurrence: US)
  Receive Date: 20240726
  Receipt Date: 20240726
  Transmission Date: 20241017
  Serious: Yes (Other)
  Sender: BLUEPRINT MEDICINES
  Company Number: US-Blueprint Medicines Corporation-4282

PATIENT
  Age: 42 Year
  Sex: Female

DRUGS (1)
  1. AYVAKIT [Suspect]
     Active Substance: AVAPRITINIB
     Indication: Systemic mastocytosis
     Route: 048
     Dates: start: 20230707

REACTIONS (13)
  - Loss of consciousness [Unknown]
  - Contusion [Unknown]
  - Symptom recurrence [Unknown]
  - Blood bilirubin increased [Unknown]
  - Gastrointestinal disorder [Unknown]
  - Swelling [Unknown]
  - Arthralgia [Unknown]
  - Impaired work ability [Unknown]
  - Unevaluable event [Unknown]
  - Periorbital swelling [Unknown]
  - Swelling face [Unknown]
  - Pituitary tumour benign [Unknown]
  - Temperature intolerance [Unknown]

NARRATIVE: CASE EVENT DATE: 20230707
